FAERS Safety Report 15316287 (Version 2)
Quarter: 2018Q4

REPORT INFORMATION
  Report Type: Spontaneous
  Country: PL (occurrence: PL)
  Receive Date: 20180824
  Receipt Date: 20180918
  Transmission Date: 20190204
  Serious: Yes (Other)
  Sender: FDA-Public Use
  Company Number: PL-LPDUSPRD-20181511

PATIENT
  Age: 43 Year
  Sex: Male
  Weight: 75.5 kg

DRUGS (8)
  1. CONTROLOC [Concomitant]
     Active Substance: PANTOPRAZOLE SODIUM
     Dosage: 40 MG, 1 IN 1 D
     Route: 048
  2. PARICALCITOL FRESENIUS [Suspect]
     Active Substance: PARICALCITOL
     Dosage: 5 MCG, 1 IN 1 WK
     Route: 042
     Dates: start: 20180720, end: 20180727
  3. NEORECORMON [Concomitant]
     Active Substance: ERYTHROPOIETIN
     Dosage: 8000 IU, 1 IN 1 WK
     Route: 058
     Dates: start: 201804
  4. TRITACE [Concomitant]
     Active Substance: RAMIPRIL
     Dosage: 5 MG, 1 IN 1 D
     Route: 048
     Dates: start: 20180418
  5. DOXAR [Concomitant]
     Dosage: 4 MG, 1 IN 1 D
     Route: 048
     Dates: start: 2015
  6. AMLOZEK [Concomitant]
     Active Substance: AMLODIPINE BESYLATE
     Dosage: 5 MG, 1 IN 1 D
     Route: 048
     Dates: start: 2015
  7. CONCOR COR [Concomitant]
     Active Substance: BISOPROLOL FUMARATE
     Dosage: 2.5 MG, 1 IN 1 D
     Route: 048
  8. VENOFER [Suspect]
     Active Substance: IRON SUCROSE
     Dosage: 40 MG, 1 IN 1 WK
     Route: 040
     Dates: start: 201805

REACTIONS (1)
  - Leukopenia [Unknown]

NARRATIVE: CASE EVENT DATE: 20180801
